FAERS Safety Report 7179432 (Version 1)
Quarter: 2020Q3

REPORT INFORMATION
  Report Type: Report from Study
  Country: IN (occurrence: IN)
  Receive Date: 20091117
  Receipt Date: 20091117
  Transmission Date: 20201105
  Serious: Yes (Hospitalization)
  Sender: FDA-Public Use
  Company Number: IN-WYE-H12098909

PATIENT
  Age: 48 Year
  Sex: Male
  Weight: 69 kg

DRUGS (4)
  1. POTASSIUM CHLORIDE\SODIUM CHLORIDE\SODIUM LACTATE [Concomitant]
     Active Substance: POTASSIUM CHLORIDE\SODIUM CHLORIDE\SODIUM LACTATE
     Indication: DEHYDRATION
     Dosage: NOT PROVIDED
     Route: 042
     Dates: start: 20091109
  2. VITAMINS NOS [Concomitant]
     Active Substance: VITAMINS
     Indication: DEHYDRATION
     Dosage: NOT PROVIDED
     Route: 042
     Dates: start: 20091109
  3. TEMSIROLIMUS. [Suspect]
     Active Substance: TEMSIROLIMUS
     Indication: RENAL CELL CARCINOMA
     Route: 042
     Dates: start: 20091010
  4. BEVACIZUMAB. [Suspect]
     Active Substance: BEVACIZUMAB
     Indication: RENAL CELL CARCINOMA
     Route: 042
     Dates: start: 20091010

REACTIONS (2)
  - Proctalgia [Recovered/Resolved]
  - Vomiting [Recovered/Resolved]

NARRATIVE: CASE EVENT DATE: 20091109
